FAERS Safety Report 13879664 (Version 1)
Quarter: 2017Q3

REPORT INFORMATION
  Report Type: Spontaneous
  Country: JP (occurrence: JP)
  Receive Date: 20170818
  Receipt Date: 20170818
  Transmission Date: 20171127
  Serious: Yes (Other)
  Sender: FDA-Public Use
  Company Number: JP-ROCHE-1975159

PATIENT
  Age: 42 Year
  Sex: Male

DRUGS (4)
  1. XELODA [Suspect]
     Active Substance: CAPECITABINE
     Indication: HER-2 POSITIVE GASTRIC CANCER
     Route: 048
     Dates: start: 20170627, end: 20170721
  2. CISPLATIN. [Suspect]
     Active Substance: CISPLATIN
     Indication: HER-2 POSITIVE GASTRIC CANCER
     Route: 041
     Dates: start: 20170627, end: 2017
  3. HERCEPTIN [Suspect]
     Active Substance: TRASTUZUMAB
     Indication: HER-2 POSITIVE GASTRIC CANCER
     Dosage: DATE OF LAST DOSE: 18/JUL/2017
     Route: 041
     Dates: start: 20170627
  4. XELODA [Suspect]
     Active Substance: CAPECITABINE
     Dosage: DATE OF LAST DOSE: 01/AUG/2017
     Route: 048
     Dates: start: 20170727

REACTIONS (1)
  - Malaise [Recovered/Resolved]

NARRATIVE: CASE EVENT DATE: 20170722
